FAERS Safety Report 18270566 (Version 1)
Quarter: 2020Q3

REPORT INFORMATION
  Report Type: Report from Study
  Country: US (occurrence: US)
  Receive Date: 20200915
  Receipt Date: 20200915
  Transmission Date: 20201103
  Serious: Yes (Hospitalization, Other)
  Sender: FDA-Public Use
  Company Number: US-JNJFOC-A-US2019-190116

PATIENT
  Age: 72 Year
  Sex: Female

DRUGS (9)
  1. LASIX [Concomitant]
     Active Substance: FUROSEMIDE
  2. METOPROLOL. [Concomitant]
     Active Substance: METOPROLOL
  3. SYNTHROID [Concomitant]
     Active Substance: LEVOTHYROXINE SODIUM
  4. VALIUM [Concomitant]
     Active Substance: DIAZEPAM
  5. WARFARIN [Concomitant]
     Active Substance: WARFARIN
  6. PRILOSEC [Concomitant]
     Active Substance: OMEPRAZOLE MAGNESIUM
  7. LEVAQUIN [Concomitant]
     Active Substance: LEVOFLOXACIN
  8. OXYGEN. [Concomitant]
     Active Substance: OXYGEN
  9. OPSUMIT [Suspect]
     Active Substance: MACITENTAN
     Indication: PULMONARY ARTERIAL HYPERTENSION
     Dosage: 10 MG, QD
     Route: 048
     Dates: start: 20161112

REACTIONS (7)
  - Urinary tract infection [Not Recovered/Not Resolved]
  - Fall [Unknown]
  - Cerebrovascular accident [Unknown]
  - Transient ischaemic attack [Unknown]
  - Hypoaesthesia [Unknown]
  - Eye pruritus [Unknown]
  - Tremor [Not Recovered/Not Resolved]

NARRATIVE: CASE EVENT DATE: 20190422
